FAERS Safety Report 6750056-6 (Version None)
Quarter: 2010Q2

REPORT INFORMATION
  Report Type: 
  Country: None (occurrence: None)
  Receive Date: 20100601
  Receipt Date: 20100519
  Transmission Date: 20101027
  Serious: Yes (Hospitalization)
  Sender: FDA-Public Use
  Company Number: GB-PFIZER INC-2010062625

PATIENT
  Age: 50 Year
  Sex: Female

DRUGS (5)
  1. DOXORUBICIN HCL [Suspect]
     Indication: HODGKIN'S DISEASE
     Dosage: 43.5 MG, UNK
     Route: 042
     Dates: start: 20100302
  2. DACARBAZINE [Suspect]
     Indication: HODGKIN'S DISEASE
     Dosage: 652.5 MG, UNK
     Route: 042
     Dates: start: 20100302
  3. COTRIM [Concomitant]
     Dosage: 480 MG, UNK
     Route: 048
     Dates: start: 20100302
  4. LANSOPRAZOLE [Concomitant]
     Dosage: 30 MG, UNK
     Route: 048
     Dates: start: 20100302
  5. NYSTATIN [Concomitant]
     Dosage: 1 ML, UNK
     Route: 048
     Dates: start: 20100302

REACTIONS (2)
  - BACTERAEMIA [None]
  - STAPHYLOCOCCAL INFECTION [None]
